FAERS Safety Report 14477635 (Version 1)
Quarter: 2018Q1

REPORT INFORMATION
  Report Type: Report from Study
  Country: US (occurrence: US)
  Receive Date: 20180201
  Receipt Date: 20180201
  Transmission Date: 20180509
  Serious: No
  Sender: FDA-Public Use
  Company Number: US-EXELIXIS-CABO-17009346

PATIENT
  Age: 69 Year
  Sex: Male

DRUGS (13)
  1. LISINOPRIL. [Concomitant]
     Active Substance: LISINOPRIL
  2. GABAPENTIN. [Concomitant]
     Active Substance: GABAPENTIN
  3. CLOPIDOGREL [Concomitant]
     Active Substance: CLOPIDOGREL BISULFATE
  4. GEMFIBROZIL. [Concomitant]
     Active Substance: GEMFIBROZIL
  5. LEVOTHYROXIN [Concomitant]
     Active Substance: LEVOTHYROXINE
  6. METRONIDAZOL [Concomitant]
     Active Substance: METRONIDAZOLE
  7. PREDNISONE. [Concomitant]
     Active Substance: PREDNISONE
  8. AMIODARONE [Concomitant]
     Active Substance: AMIODARONE
  9. RANITIDINE. [Concomitant]
     Active Substance: RANITIDINE
  10. ONDANSETRON [Concomitant]
     Active Substance: ONDANSETRON
  11. PANTOPRAZOLE [Concomitant]
     Active Substance: PANTOPRAZOLE
  12. CABOMETYX [Suspect]
     Active Substance: CABOZANTINIB S-MALATE
     Indication: RENAL CANCER
     Dosage: 40 MG, QD
     Route: 048
     Dates: start: 20170525, end: 20170614
  13. TAMSULOSIN [Concomitant]
     Active Substance: TAMSULOSIN

REACTIONS (3)
  - Asthenia [Unknown]
  - Liver function test increased [Unknown]
  - Nausea [Unknown]

NARRATIVE: CASE EVENT DATE: 20170525
